FAERS Safety Report 11727996 (Version 1)
Quarter: 2015Q4

REPORT INFORMATION
  Report Type: Spontaneous
  Country: CA (occurrence: US)
  Receive Date: 20151112
  Receipt Date: 20151112
  Transmission Date: 20160304
  Serious: No
  Sender: FDA-Public Use
  Company Number: CA-009507513-1511USA002308

PATIENT
  Age: 60 Year
  Sex: Male

DRUGS (25)
  1. RIBAVIRIN. [Suspect]
     Active Substance: RIBAVIRIN
     Dosage: 400 MG, BID
     Route: 048
     Dates: start: 20120924, end: 20121106
  2. PEGASYS [Suspect]
     Active Substance: PEGINTERFERON ALFA-2A
     Dosage: 90 MICROGRAM, QW
     Route: 058
     Dates: start: 20121211, end: 20130122
  3. RIBAVIRIN. [Suspect]
     Active Substance: RIBAVIRIN
     Indication: HEPATITIS C
     Dosage: 600 MG, BID
     Route: 048
     Dates: start: 20120725
  4. RIBAVIRIN. [Suspect]
     Active Substance: RIBAVIRIN
     Dosage: 200 MG, QAM
     Route: 048
     Dates: start: 20120814, end: 20120904
  5. RIBAVIRIN. [Suspect]
     Active Substance: RIBAVIRIN
     Dosage: 400MG, HS
     Route: 048
     Dates: start: 20130319, end: 20130430
  6. RIBAVIRIN. [Suspect]
     Active Substance: RIBAVIRIN
     Dosage: 200 MG, BID
     Route: 048
     Dates: start: 20130430, end: 20130823
  7. PEGASYS [Suspect]
     Active Substance: PEGINTERFERON ALFA-2A
     Dosage: 180 MICROGRAM, QW
     Route: 058
     Dates: start: 20120814, end: 20120821
  8. SYNTHROID [Concomitant]
     Active Substance: LEVOTHYROXINE SODIUM
     Indication: HYPOTHYROIDISM
     Dosage: 75 UNK, QD
     Route: 048
  9. CITAPRAM [Concomitant]
     Indication: DEPRESSION
     Dosage: 40 UNK, QD
     Route: 048
  10. OXAZEPAM. [Concomitant]
     Active Substance: OXAZEPAM
     Indication: ANXIETY
     Dosage: 5 UNK, TID
     Route: 048
  11. RIBAVIRIN. [Suspect]
     Active Substance: RIBAVIRIN
     Dosage: 200 MG, QAM
     Route: 048
     Dates: start: 20130319, end: 20130430
  12. BOCEPREVIR [Suspect]
     Active Substance: BOCEPREVIR
     Dosage: 800 MG, TID
     Route: 048
     Dates: start: 20120924, end: 20121106
  13. PEGASYS [Suspect]
     Active Substance: PEGINTERFERON ALFA-2A
     Dosage: 90 MICROGRAM, QW
     Route: 058
     Dates: start: 20120924, end: 20121106
  14. CIALIS [Concomitant]
     Active Substance: TADALAFIL
     Indication: ERECTILE DYSFUNCTION
     Dosage: 20 UNK, QD
     Route: 048
  15. MIRTAZAPINE. [Concomitant]
     Active Substance: MIRTAZAPINE
     Indication: DEPRESSION
     Dosage: 30 UNK, QD
     Route: 048
  16. BOCEPREVIR [Suspect]
     Active Substance: BOCEPREVIR
     Indication: HEPATITIS C
     Dosage: 800 MG, TID
     Route: 048
     Dates: start: 20120814, end: 20120904
  17. RIBAVIRIN. [Suspect]
     Active Substance: RIBAVIRIN
     Dosage: 600 MG, QAM
     Route: 048
     Dates: start: 20130206, end: 20130213
  18. PEGASYS [Suspect]
     Active Substance: PEGINTERFERON ALFA-2A
     Indication: HEPATITIS C
     Dosage: 90 MICROGRAM, QW
     Route: 058
     Dates: start: 20120807
  19. PEGASYS [Suspect]
     Active Substance: PEGINTERFERON ALFA-2A
     Dosage: 135 MICROGRAM, QW
     Route: 058
     Dates: start: 20130206
  20. EPIVIR [Suspect]
     Active Substance: LAMIVUDINE
     Indication: HIV INFECTION
     Dosage: UNK, QD
     Route: 048
     Dates: start: 20130206, end: 20130313
  21. RIBAVIRIN. [Suspect]
     Active Substance: RIBAVIRIN
     Dosage: 400 MG, HS
     Route: 048
     Dates: start: 20120814, end: 20120904
  22. RIBAVIRIN. [Suspect]
     Active Substance: RIBAVIRIN
     Dosage: 200 MG, BID
     Route: 048
     Dates: start: 20121211, end: 20130122
  23. RIBAVIRIN. [Suspect]
     Active Substance: RIBAVIRIN
     Dosage: 400 MG, HS
     Route: 048
     Dates: start: 20130206, end: 20130213
  24. PEGASYS [Suspect]
     Active Substance: PEGINTERFERON ALFA-2A
     Dosage: 90 MICROGRAM, QW
     Route: 058
     Dates: start: 20120821, end: 20120904
  25. PEGASYS [Suspect]
     Active Substance: PEGINTERFERON ALFA-2A
     Dosage: 90 MICROGRAM, QW
     Route: 058
     Dates: start: 20130319, end: 20130823

REACTIONS (22)
  - Haemoglobin decreased [Unknown]
  - Neutrophil count decreased [Unknown]
  - White blood cell count decreased [Unknown]
  - Neutrophil count decreased [Unknown]
  - Haematocrit decreased [Unknown]
  - White blood cell count decreased [Unknown]
  - White blood cell count decreased [Unknown]
  - Neutrophil count decreased [Unknown]
  - Haematocrit decreased [Unknown]
  - Neutrophil count decreased [Unknown]
  - Platelet count decreased [Unknown]
  - Neutrophil count decreased [Unknown]
  - Haemoglobin decreased [Unknown]
  - Red blood cell count decreased [Unknown]
  - Haemoglobin decreased [Unknown]
  - Platelet count decreased [Unknown]
  - White blood cell count decreased [Unknown]
  - White blood cell count decreased [Unknown]
  - Red blood cell count decreased [Unknown]
  - Neutrophil count decreased [Unknown]
  - Neutrophil count decreased [Unknown]
  - White blood cell count decreased [Unknown]

NARRATIVE: CASE EVENT DATE: 20120731
